FAERS Safety Report 23705174 (Version 1)
Quarter: 2024Q2

REPORT INFORMATION
  Report Type: Spontaneous
  Country: GB (occurrence: GB)
  Receive Date: 20240404
  Receipt Date: 20240404
  Transmission Date: 20240717
  Serious: Yes (Other)
  Sender: FDA-Public Use
  Company Number: None

PATIENT
  Age: 76 Year
  Sex: Female
  Weight: 70 kg

DRUGS (15)
  1. DOXAZOSIN [Suspect]
     Active Substance: DOXAZOSIN MESYLATE
     Route: 065
     Dates: start: 20240129
  2. METHOTREXATE [Concomitant]
     Active Substance: METHOTREXATE
     Dosage: (EIGHT TABLETS)
     Dates: start: 20231211
  3. CARBOMER [Concomitant]
     Active Substance: CARBOMER
     Dosage: APPLY FOUR TIMES DAILY TO BOTH EYES
     Dates: start: 20231211
  4. LEVOTHYROXINE [Concomitant]
     Active Substance: LEVOTHYROXINE\LEVOTHYROXINE SODIUM
     Dates: start: 20230608
  5. BECLOMETHASONE DIPROPIONATE [Concomitant]
     Active Substance: BECLOMETHASONE DIPROPIONATE
     Dosage: OR AS DIRECTED TO PREVENT B,
     Dates: start: 20210505
  6. LERCANIDIPINE HYDROCHLORIDE [Concomitant]
     Active Substance: LERCANIDIPINE HYDROCHLORIDE
     Dates: start: 20240122, end: 20240126
  7. SOLIFENACIN [Concomitant]
     Active Substance: SOLIFENACIN
     Dates: start: 20231219, end: 20240228
  8. ATORVASTATIN [Concomitant]
     Active Substance: ATORVASTATIN
     Dates: start: 20230608, end: 20240122
  9. BIMATOPROST [Concomitant]
     Active Substance: BIMATOPROST
     Dosage: ONE DROP IN BOTH EYES AT NIGHT,
     Route: 047
     Dates: start: 20230823
  10. LOSARTAN [Concomitant]
     Active Substance: LOSARTAN
     Indication: Hypertension
     Dosage: MORNING,
     Dates: start: 20230608
  11. INDAPAMIDE [Concomitant]
     Active Substance: INDAPAMIDE
     Dosage: MORNING,
  12. CHOLECALCIFEROL [Concomitant]
     Active Substance: CHOLECALCIFEROL
     Dates: start: 20230608
  13. BRINZOLAMIDE [Concomitant]
     Active Substance: BRINZOLAMIDE
     Dosage: ONE DROP BOTH EYES TWICE DAILY,
     Route: 047
     Dates: start: 20231206, end: 20240308
  14. OMEPRAZOLE [Concomitant]
     Active Substance: OMEPRAZOLE
     Dosage: TO PROTECT YOUR STOMACH,
     Dates: start: 20230608
  15. FOLIC ACID [Concomitant]
     Active Substance: FOLIC ACID
     Dosage: EVERY DAY BUT METHOTREXATE,
     Dates: start: 20230608

REACTIONS (1)
  - Oedema peripheral [Recovering/Resolving]
